FAERS Safety Report 5703866-8 (Version None)
Quarter: 2008Q2

REPORT INFORMATION
  Report Type: 
  Country: None (occurrence: None)
  Receive Date: 20080414
  Receipt Date: 20080331
  Transmission Date: 20081010
  Serious: Yes (Other)
  Sender: FDA-Public Use
  Company Number: CA-ELI_LILLY_AND_COMPANY-CA200803004202

PATIENT
  Sex: Female
  Weight: 61.224 kg

DRUGS (13)
  1. ZYPREXA [Suspect]
     Indication: DEPRESSION
     Dosage: 10 MG, DAILY (1/D)
     Route: 048
     Dates: start: 20070901
  2. ZYPREXA [Suspect]
     Dosage: 7.5 MG, DAILY (1/D)
     Route: 048
     Dates: start: 20080217
  3. ZYPREXA [Suspect]
     Dosage: 5 MG, DAILY (1/D)
     Route: 048
  4. ZYPREXA [Suspect]
     Dosage: 2.5 MG, DAILY (1/D)
     Route: 048
     Dates: end: 20080324
  5. CLONAZEPAM [Concomitant]
     Dosage: 0.5 G, 2/D
  6. LORAZEPAM [Concomitant]
  7. MIRTAZAPINE [Concomitant]
     Dosage: 75 MG, EACH EVENING
  8. BUPROPION HCL [Concomitant]
     Dosage: 150 MG, 2/D
  9. QUETIAPINE FUMARATE [Concomitant]
     Dosage: 25 MG, EACH EVENING
  10. PREGABALIN [Concomitant]
     Indication: PAIN
     Dosage: 75 MG, DAILY (1/D)
  11. BISOPROLOL FUMARATE [Concomitant]
     Indication: TACHYCARDIA
     Dosage: 10 MG, DAILY (1/D)
  12. DOXYLAMINE SUCCINATE [Concomitant]
     Indication: NAUSEA
     Dosage: 25 MG, DAILY (1/D)
  13. CODEINE PHOSPHATE AND ACETAMINOPHEN [Concomitant]
     Indication: PAIN
     Dosage: UNK, 2/D

REACTIONS (3)
  - HALLUCINATION, VISUAL [None]
  - VISION BLURRED [None]
  - WEIGHT INCREASED [None]
